FAERS Safety Report 24774448 (Version 1)
Quarter: 2024Q4

REPORT INFORMATION
  Report Type: Spontaneous
  Country: JP (occurrence: JP)
  Receive Date: 20241225
  Receipt Date: 20241225
  Transmission Date: 20250115
  Serious: Yes (Hospitalization, Other)
  Sender: AMGEN
  Company Number: JP-AMGEN-JPNSP2024253595

PATIENT

DRUGS (1)
  1. TAVNEOS [Suspect]
     Active Substance: AVACOPAN
     Indication: Product used for unknown indication
     Dosage: UNK
     Route: 048

REACTIONS (9)
  - Hospitalisation [Unknown]
  - Lung neoplasm malignant [Unknown]
  - Liver disorder [Unknown]
  - Pyrexia [Unknown]
  - Dysphagia [Unknown]
  - Product physical issue [Unknown]
  - Malaise [Unknown]
  - Abulia [Unknown]
  - Liver disorder [Unknown]
